FAERS Safety Report 17364963 (Version 1)
Quarter: 2020Q1

REPORT INFORMATION
  Report Type: Spontaneous
  Country: NL (occurrence: NL)
  Receive Date: 20200204
  Receipt Date: 20200204
  Transmission Date: 20200409
  Serious: Yes (Other)
  Sender: FDA-Public Use
  Company Number: NL-AUROBINDO-AUR-APL-2020-006373

PATIENT
  Age: 77 Year
  Sex: Male
  Weight: 80 kg

DRUGS (2)
  1. MIRTAZAPINE FILM-COATED TABLETS 15MG [Suspect]
     Active Substance: MIRTAZAPINE
     Indication: SLEEP DISORDER
     Dosage: 15 MILLIGRAM, ONCE A DAY (17/10 - 1/12: 15 MG 1X PD)
     Route: 065
     Dates: start: 20191017
  2. MIRTAZAPINE FILM-COATED TABLETS 15MG [Suspect]
     Active Substance: MIRTAZAPINE
     Dosage: 7 MILLIGRAM, ONCE A DAY (2/12-8/12: 7,5 MG 1XPD)
     Route: 065

REACTIONS (1)
  - Seizure [Recovered/Resolved]

NARRATIVE: CASE EVENT DATE: 20191218
